FAERS Safety Report 7831500-X (Version None)
Quarter: 2011Q4

REPORT INFORMATION
  Report Type: 
  Country: None (occurrence: None)
  Receive Date: 20111021
  Receipt Date: 20111021
  Transmission Date: 20120403
  Serious: Yes (Death)
  Sender: FDA-Public Use
  Company Number: None

PATIENT
  Age: 76 Year
  Sex: Male

DRUGS (1)
  1. PRADAXA [Suspect]
     Indication: ATRIAL FIBRILLATION
     Dosage: 150 MG
     Route: 048
     Dates: start: 20110715, end: 20110901

REACTIONS (5)
  - HAEMORRHAGE INTRACRANIAL [None]
  - LOSS OF CONSCIOUSNESS [None]
  - HEAD INJURY [None]
  - FALL [None]
  - HAEMATOMA [None]
